FAERS Safety Report 7322512-3 (Version None)
Quarter: 2011Q1

REPORT INFORMATION
  Report Type: 
  Country: None (occurrence: None)
  Receive Date: 20110301
  Receipt Date: 20100907
  Transmission Date: 20110831
  Serious: Yes (Hospitalization, Other)
  Sender: FDA-Public Use
  Company Number: US-BAYER-201010771NA

PATIENT
  Sex: Female
  Weight: 65.455 kg

DRUGS (8)
  1. YASMIN [Suspect]
     Indication: CONTRACEPTION
     Route: 048
     Dates: start: 20030101, end: 20070101
  2. ZYRTEC [Concomitant]
     Dosage: 10 MG (DAILY DOSE), , ORAL
     Route: 048
  3. EFFEXOR XR [Concomitant]
     Dosage: 75 MG (DAILY DOSE), QD, ORAL
     Route: 048
  4. TOPROL-XL [Concomitant]
     Indication: HYPERTENSION
     Dosage: 100 MG (DAILY DOSE), , ORAL
     Route: 048
  5. PREDNISONE [Concomitant]
     Dosage: EACH DAY X 3 DAYS EACH MONTH
     Route: 048
  6. BETASERON [Concomitant]
     Dosage: 1 ML (DAILY DOSE), QOD, SUBCUTANEOUS
     Route: 058
  7. AMOXICILLIN [Concomitant]
     Dosage: 1500 MG (DAILY DOSE), , ORAL
     Route: 048
  8. MACRODANTIN [Concomitant]
     Dosage: 50 MG (DAILY DOSE), , ORAL
     Route: 048

REACTIONS (5)
  - PULMONARY EMBOLISM [None]
  - DYSPNOEA [None]
  - CHEST DISCOMFORT [None]
  - DEEP VEIN THROMBOSIS [None]
  - PAIN [None]
